FAERS Safety Report 14952468 (Version 6)
Quarter: 2019Q2

REPORT INFORMATION
  Report Type: Spontaneous
  Country: US (occurrence: US)
  Receive Date: 20180530
  Receipt Date: 20190624
  Transmission Date: 20190711
  Serious: No
  Sender: FDA-Public Use
  Company Number: US-PFIZER INC-2018216277

PATIENT
  Age: 71 Year
  Sex: Female
  Weight: 70 kg

DRUGS (8)
  1. IBRANCE [Suspect]
     Active Substance: PALBOCICLIB
     Indication: BREAST CANCER METASTATIC
     Dosage: 125 MG, CYCLIC (CAPSULE 1 TIME DAILY FOR 3 WEEKS AND THEN 1 WEEK OFF CYCLE)
     Route: 048
     Dates: start: 20171224, end: 20180618
  2. IBRANCE [Suspect]
     Active Substance: PALBOCICLIB
     Dosage: 100 MG, CYCLIC (3WEEKS ON; 1 WEEK OFF)
     Route: 048
     Dates: start: 2018, end: 20181201
  3. LETROZOLE. [Concomitant]
     Active Substance: LETROZOLE
     Dosage: UNK
     Dates: start: 201712
  4. PRAVASTATIN. [Concomitant]
     Active Substance: PRAVASTATIN
     Indication: BLOOD CHOLESTEROL INCREASED
     Dosage: 20 MG, 1X/DAY
     Route: 048
     Dates: start: 2006
  5. LETROZOLE. [Concomitant]
     Active Substance: LETROZOLE
     Indication: BREAST CANCER METASTATIC
     Dosage: 2.5 MG, 1X/DAY
     Route: 048
     Dates: start: 201712
  6. VENLAFAXINE [Concomitant]
     Active Substance: VENLAFAXINE HYDROCHLORIDE
     Indication: ANXIETY
     Dosage: 37.5 MG, 1X/DAY
     Route: 048
     Dates: start: 201709
  7. CARTIA [Concomitant]
     Indication: HYPERTENSION
     Dosage: 180 MG, 1X/DAY
     Route: 048
     Dates: start: 2006
  8. DIAZEPAM. [Concomitant]
     Active Substance: DIAZEPAM
     Indication: INSOMNIA
     Dosage: 5 MG, AS NEEDED
     Route: 048
     Dates: start: 201709

REACTIONS (6)
  - Sinusitis [Recovered/Resolved]
  - Oral mucosal blistering [Recovered/Resolved]
  - Allergic sinusitis [Recovered/Resolved]
  - Fatigue [Recovered/Resolved]
  - Blood count abnormal [Recovered/Resolved]
  - Oral pain [Recovered/Resolved]

NARRATIVE: CASE EVENT DATE: 2018
